FAERS Safety Report 6494425-0 (Version None)
Quarter: 2009Q4

REPORT INFORMATION
  Report Type: 
  Country: None (occurrence: None)
  Receive Date: 20091214
  Receipt Date: 20090217
  Transmission Date: 20100525
  Serious: No
  Sender: FDA-Public Use
  Company Number: US-BRISTOL-MYERS SQUIBB COMPANY-14510143

PATIENT
  Age: 62 Year
  Sex: Female

DRUGS (3)
  1. ABILIFY [Suspect]
     Indication: MAJOR DEPRESSION
     Dosage: 1 DF=2MG OR  5MG
  2. WELLBUTRIN SR [Concomitant]
  3. ATIVAN [Concomitant]

REACTIONS (1)
  - AKATHISIA [None]
